FAERS Safety Report 9907305 (Version 1)
Quarter: 2014Q1

REPORT INFORMATION
  Report Type: Report from Study
  Country: US (occurrence: DE)
  Receive Date: 20140218
  Receipt Date: 20140218
  Transmission Date: 20141002
  Serious: Yes (Other)
  Sender: FDA-Public Use
  Company Number: DE-FRI-1000054263

PATIENT
  Age: 31 Year
  Sex: Male

DRUGS (1)
  1. ASENAPINE [Suspect]
     Indication: BIPOLAR I DISORDER
     Route: 048
     Dates: start: 20120802

REACTIONS (2)
  - Acute psychosis [Recovered/Resolved]
  - Drug ineffective [Recovered/Resolved]
